FAERS Safety Report 10337390 (Version 3)
Quarter: 2014Q4

REPORT INFORMATION
  Report Type: Spontaneous
  Country: IT (occurrence: IT)
  Receive Date: 20140724
  Receipt Date: 20141104
  Transmission Date: 20150528
  Serious: Yes (Other)
  Sender: FDA-Public Use
  Company Number: IT-009507513-1407ITA009027

PATIENT
  Age: 58 Year
  Sex: Male
  Weight: 80 kg

DRUGS (3)
  1. COPEGUS [Suspect]
     Active Substance: RIBAVIRIN
     Indication: CHRONIC HEPATITIS C
     Dosage: 1200 MG, DAILY
     Route: 048
     Dates: start: 20131122, end: 20140410
  2. PEGASYS [Suspect]
     Active Substance: PEGINTERFERON ALFA-2A
     Indication: CHRONIC HEPATITIS C
     Dosage: 180 MICROGRAM WEEKLY
     Route: 058
     Dates: start: 20131122, end: 20140410
  3. VICTRELIS [Suspect]
     Active Substance: BOCEPREVIR
     Indication: CHRONIC HEPATITIS C
     Dosage: 2400 MG DAILY
     Route: 048
     Dates: start: 20131220, end: 20140410

REACTIONS (1)
  - Retching [Recovered/Resolved]

NARRATIVE: CASE EVENT DATE: 20140213
